FAERS Safety Report 21280049 (Version 1)
Quarter: 2022Q3

REPORT INFORMATION
  Report Type: Spontaneous
  Country: US (occurrence: None)
  Receive Date: 20220831
  Receipt Date: 20220831
  Transmission Date: 20221027
  Serious: Yes (Disabling)
  Sender: FDA-Public Use
  Company Number: None

PATIENT
  Age: 54 Year
  Sex: Female
  Weight: 58.5 kg

DRUGS (7)
  1. TOPAMAX [Suspect]
     Active Substance: TOPIRAMATE
     Indication: Headache
     Dosage: OTHER STRENGTH : MG;?OTHER QUANTITY : 10 MG;?FREQUENCY : AT BEDTIME;?
     Route: 048
  2. NEURONTIN [Suspect]
     Active Substance: GABAPENTIN
  3. IVF [Concomitant]
  4. VICKS NYQUIL [Concomitant]
     Active Substance: ACETAMINOPHEN\DEXTROMETHORPHAN HYDROBROMIDE\DOXYLAMINE SUCCINATE
  5. ADVIL PM [Concomitant]
     Active Substance: DIPHENHYDRAMINE CITRATE\IBUPROFEN
  6. ALEVE PM [Concomitant]
     Active Substance: DIPHENHYDRAMINE HYDROCHLORIDE\NAPROXEN SODIUM
  7. alteril sleep aids [Concomitant]

REACTIONS (7)
  - Anger [None]
  - Aggression [None]
  - Aggression [None]
  - Loss of consciousness [None]
  - Head injury [None]
  - Dental caries [None]
  - Tooth fracture [None]

NARRATIVE: CASE EVENT DATE: 20220406
